FAERS Safety Report 8050619-4 (Version None)
Quarter: 2012Q1

REPORT INFORMATION
  Report Type: 
  Country: None (occurrence: None)
  Receive Date: 20120117
  Receipt Date: 20120117
  Transmission Date: 20120608
  Serious: Yes (Death, Life-Threatening, Hospitalization, Disabling, Congenital Anomaly, Other)
  Sender: FDA-Public Use
  Company Number: None

PATIENT
  Age: 67 Year
  Sex: Male
  Weight: 73.481 kg

DRUGS (1)
  1. AFINITOR [Suspect]
     Indication: METASTATIC RENAL CELL CARCINOMA
     Dosage: 1 PILL
     Route: 048
     Dates: start: 20110801, end: 20111004

REACTIONS (4)
  - BLADDER PAIN [None]
  - URINARY INCONTINENCE [None]
  - ERYTHEMA [None]
  - BLADDER DISORDER [None]
